FAERS Safety Report 4897782-1 (Version None)
Quarter: 2006Q1

REPORT INFORMATION
  Report Type: 
  Country: None (occurrence: None)
  Receive Date: 20060201
  Receipt Date: 20060124
  Transmission Date: 20060701
  Serious: Yes (Other)
  Sender: FDA-Public Use
  Company Number: PHBS2006BR01481

PATIENT
  Age: 49 Year
  Sex: Male

DRUGS (2)
  1. FORASEQ [Suspect]
     Indication: ASTHMA
     Route: 048
     Dates: start: 20060124, end: 20060124
  2. FORASEQ [Suspect]
     Dosage: UNK, BID

REACTIONS (7)
  - DIARRHOEA [None]
  - HYPERSENSITIVITY [None]
  - INCORRECT ROUTE OF DRUG ADMINISTRATION [None]
  - NASAL POLYPS [None]
  - PNEUMONIA [None]
  - SINUSITIS [None]
  - URTICARIA [None]
